FAERS Safety Report 13585890 (Version 3)
Quarter: 2018Q1

REPORT INFORMATION
  Report Type: Report from Study
  Country: DE (occurrence: DE)
  Receive Date: 20170526
  Receipt Date: 20180306
  Transmission Date: 20180508
  Serious: Yes (Hospitalization)
  Sender: FDA-Public Use
  Company Number: DE-ROCHE-1938872

PATIENT
  Age: 71 Year
  Sex: Male

DRUGS (4)
  1. TOCILIZUMAB. [Suspect]
     Active Substance: TOCILIZUMAB
     Indication: RHEUMATOID ARTHRITIS
     Route: 065
     Dates: end: 20161129
  2. TRUXIMA [Concomitant]
     Active Substance: RITUXIMAB
     Route: 065
     Dates: start: 201708
  3. METHOTREXATE. [Concomitant]
     Active Substance: METHOTREXATE
     Route: 065
  4. MABTHERA [Suspect]
     Active Substance: RITUXIMAB
     Indication: RHEUMATOID ARTHRITIS
     Route: 065
     Dates: start: 201702

REACTIONS (4)
  - Rheumatoid arthritis [Recovered/Resolved]
  - Hepatic steatosis [Unknown]
  - Rheumatoid arthritis [Unknown]
  - Bronchitis chronic [Unknown]
